FAERS Safety Report 4706214-5 (Version None)
Quarter: 2005Q2

REPORT INFORMATION
  Report Type: 
  Country: None (occurrence: None)
  Receive Date: 20050627
  Receipt Date: 20050420
  Transmission Date: 20051028
  Serious: No
  Sender: FDA-Public Use
  Company Number: IND-AE-05-SAN-020

PATIENT
  Age: 75 Year
  Sex: Female
  Weight: 58.9676 kg

DRUGS (8)
  1. SANCTURA [Suspect]
     Indication: HYPERTONIC BLADDER
     Dosage: 40MG (2TABS) PO QD
     Route: 048
     Dates: start: 20050404
  2. ATENOLOL [Concomitant]
  3. ACTONEL [Concomitant]
  4. ALDACTONE [Concomitant]
  5. LIPITOR [Concomitant]
  6. CARAFATE [Concomitant]
  7. NEXIUM [Concomitant]
  8. PREDNISONE TAB [Concomitant]

REACTIONS (2)
  - DYSPNOEA [None]
  - FATIGUE [None]
